FAERS Safety Report 6398351-7 (Version None)
Quarter: 2009Q4

REPORT INFORMATION
  Report Type: 
  Country: None (occurrence: None)
  Receive Date: 20091013
  Receipt Date: 20091002
  Transmission Date: 20100525
  Serious: Yes (Other)
  Sender: FDA-Public Use
  Company Number: US-PFIZER INC-2009256583

PATIENT
  Sex: Female
  Weight: 61.2 kg

DRUGS (3)
  1. AROMASIN [Suspect]
     Indication: BREAST CANCER
     Dosage: 25 MG, 1X/DAY
     Dates: start: 20080101
  2. AROMASIN [Suspect]
     Dosage: 50 MG, 1X/DAY
     Dates: start: 20080101
  3. HERCEPTIN [Concomitant]

REACTIONS (3)
  - DEPRESSION [None]
  - DRUG INEFFECTIVE [None]
  - SPINAL CORD COMPRESSION [None]
